FAERS Safety Report 6121408-2 (Version None)
Quarter: 2009Q1

REPORT INFORMATION
  Report Type: 
  Country: None (occurrence: None)
  Receive Date: 20090317
  Receipt Date: 20090312
  Transmission Date: 20090719
  Serious: Yes (Death)
  Sender: FDA-Public Use
  Company Number: FR-JNJFOC-20090302932

PATIENT
  Sex: Male

DRUGS (5)
  1. PREZISTA [Suspect]
     Indication: DRUG USE FOR UNKNOWN INDICATION
     Route: 048
  2. NORVIR [Concomitant]
     Route: 048
  3. SUSTIVA [Concomitant]
     Route: 048
  4. ZIAGEN [Concomitant]
     Route: 048
  5. CRESTOR [Concomitant]
     Indication: HYPERCHOLESTEROLAEMIA

REACTIONS (1)
  - MYOCARDIAL INFARCTION [None]
